FAERS Safety Report 16662905 (Version 1)
Quarter: 2019Q3

REPORT INFORMATION
  Report Type: Report from Study
  Country: US (occurrence: US)
  Receive Date: 20190802
  Receipt Date: 20190802
  Transmission Date: 20191004
  Serious: No
  Sender: FDA-Public Use
  Company Number: US-EXELIXIS-CABO-19020731

PATIENT
  Sex: Female

DRUGS (1)
  1. CABOMETYX [Suspect]
     Active Substance: CABOZANTINIB S-MALATE
     Indication: SQUAMOUS CELL CARCINOMA OF LUNG
     Dosage: 60 MG, QD
     Dates: start: 20190416

REACTIONS (4)
  - Decreased appetite [Unknown]
  - Off label use [Unknown]
  - Blister [Unknown]
  - Skin ulcer [Unknown]
